FAERS Safety Report 6235346-8 (Version None)
Quarter: 2009Q2

REPORT INFORMATION
  Report Type: 
  Country: None (occurrence: None)
  Receive Date: 20090615
  Receipt Date: 20090602
  Transmission Date: 20091009
  Serious: Yes (Congenital Anomaly)
  Sender: FDA-Public Use
  Company Number: CH-GDP-09406029

PATIENT

DRUGS (3)
  1. DIFFERIN [Suspect]
     Indication: ACNE
     Dosage: (TOPICAL)
     Route: 061
     Dates: start: 20081116, end: 20081122
  2. AZELAIC ACID [Suspect]
     Indication: ACNE
     Dosage: (TOPICAL)
     Route: 061
     Dates: start: 20081116, end: 20081122
  3. MINOCYCLINE (MINOCYCLINE) 50 MG [Suspect]
     Indication: ACNE
     Dosage: (50 MG QD ORAL)
     Route: 048
     Dates: start: 20081116, end: 20081122

REACTIONS (2)
  - CONGENITAL HAND MALFORMATION [None]
  - MATERNAL DRUGS AFFECTING FOETUS [None]
